FAERS Safety Report 4308985-9 (Version None)
Quarter: 2004Q1

REPORT INFORMATION
  Report Type: 
  Country: None (occurrence: None)
  Receive Date: 20040302
  Receipt Date: 20040220
  Transmission Date: 20041129
  Serious: Yes (Death)
  Sender: FDA-Public Use
  Company Number: JP-BRISTOL-MYERS SQUIBB COMPANY-12513776

PATIENT
  Sex: Female

DRUGS (1)
  1. VEPESID [Suspect]
     Indication: CERVIX CARCINOMA
     Route: 048

REACTIONS (2)
  - INTERSTITIAL LUNG DISEASE [None]
  - SEPTIC SHOCK [None]
